FAERS Safety Report 11716504 (Version 2)
Quarter: 2015Q4

REPORT INFORMATION
  Report Type: Spontaneous
  Country: US (occurrence: US)
  Receive Date: 20151104
  Receipt Date: 20151110
  Transmission Date: 20160304
  Serious: No
  Sender: FDA-Public Use
  Company Number: US-ELI_LILLY_AND_COMPANY-US201107001492

PATIENT
  Age: 58 Year
  Sex: Female

DRUGS (6)
  1. FORTEO [Suspect]
     Active Substance: TERIPARATIDE
     Indication: OSTEOPOROSIS
     Dosage: 20 UG, QD
     Route: 065
     Dates: start: 201106
  2. FORTEO [Suspect]
     Active Substance: TERIPARATIDE
     Dosage: 20 UG, QD
     Route: 065
  3. FORTEO [Suspect]
     Active Substance: TERIPARATIDE
     Dosage: 20 UG, QD
     Route: 065
  4. ANTIHYPERTENSIVES [Concomitant]
     Active Substance: UNSPECIFIED INGREDIENT
  5. FORTEO [Suspect]
     Active Substance: TERIPARATIDE
     Dosage: 20 UG, QD
     Route: 065
  6. FORTEO [Suspect]
     Active Substance: TERIPARATIDE
     Dosage: 20 UG, QD
     Route: 065

REACTIONS (20)
  - Injection site bruising [Unknown]
  - Injection site pain [Unknown]
  - Muscle spasms [Unknown]
  - Wrist fracture [Unknown]
  - Hypotension [Recovered/Resolved]
  - Chest discomfort [Unknown]
  - Upper limb fracture [Unknown]
  - Discomfort [Unknown]
  - Feeling hot [Recovered/Resolved]
  - Hypertension [Unknown]
  - Palpitations [Unknown]
  - Erythema [Unknown]
  - Renal pain [Unknown]
  - Musculoskeletal discomfort [Recovered/Resolved]
  - Injection site urticaria [Unknown]
  - Flushing [Unknown]
  - Sinusitis [Unknown]
  - Fall [Unknown]
  - Fall [Unknown]
  - Injection site erythema [Unknown]

NARRATIVE: CASE EVENT DATE: 201107
